FAERS Safety Report 16752230 (Version 1)
Quarter: 2019Q3

REPORT INFORMATION
  Report Type: Report from Study
  Country: US (occurrence: US)
  Receive Date: 20190828
  Receipt Date: 20190828
  Transmission Date: 20191005
  Serious: Yes (Other)
  Sender: FDA-Public Use
  Company Number: US-GLAXOSMITHKLINE-US2019AMR142078

PATIENT
  Age: 29 Year
  Sex: Male

DRUGS (4)
  1. VIBRA (DOXYCYCLINE MONOHYDRATE) [Suspect]
     Active Substance: DOXYCYCLINE
     Dosage: UNK
     Route: 065
     Dates: start: 2019
  2. BUPROPION HYDROCHLORIDE. [Suspect]
     Active Substance: BUPROPION HYDROCHLORIDE
     Indication: PRODUCT USED FOR UNKNOWN INDICATION
     Dosage: UNK
     Route: 065
     Dates: start: 2019, end: 2019
  3. VIBRA (DOXYCYCLINE MONOHYDRATE) [Suspect]
     Active Substance: DOXYCYCLINE
     Indication: PRODUCT USED FOR UNKNOWN INDICATION
     Dosage: UNK
     Route: 065
     Dates: start: 2019, end: 2019
  4. HUMIRA [Suspect]
     Active Substance: ADALIMUMAB
     Indication: CROHN^S DISEASE
     Dosage: UNK
     Route: 058
     Dates: start: 20190510, end: 20190803

REACTIONS (7)
  - Disturbance in attention [Unknown]
  - Multiple sclerosis [Unknown]
  - Insomnia [Unknown]
  - Confusional state [Unknown]
  - Feeling abnormal [Unknown]
  - Fatigue [Recovered/Resolved]
  - Condition aggravated [Unknown]

NARRATIVE: CASE EVENT DATE: 201906
